FAERS Safety Report 25830476 (Version 1)
Quarter: 2025Q3

REPORT INFORMATION
  Report Type: Spontaneous
  Country: US (occurrence: US)
  Receive Date: 20250922
  Receipt Date: 20250922
  Transmission Date: 20251021
  Serious: No
  Sender: IPSEN BIOPHARMACEUTICALS, INC.
  Company Number: US-IPSEN Group, Research and Development-2025-22889

PATIENT
  Age: 51 Year
  Sex: Female
  Weight: 72.98 kg

DRUGS (7)
  1. IQIRVO [Suspect]
     Active Substance: ELAFIBRANOR
     Indication: Product used for unknown indication
     Route: 048
  2. PROBIOTICS NOS [Concomitant]
     Active Substance: PROBIOTICS NOS
  3. ZINC [Concomitant]
     Active Substance: ZINC
  4. VITAMIN K [Concomitant]
     Active Substance: PHYTONADIONE
  5. VITAMIN D NOS [Concomitant]
     Active Substance: CHOLECALCIFEROL\ERGOCALCIFEROL
  6. URSODIOL [Concomitant]
     Active Substance: URSODIOL
  7. B12 ACTIVE [Concomitant]

REACTIONS (3)
  - Diarrhoea [Unknown]
  - Pruritus [Unknown]
  - Hypersomnia [Unknown]

NARRATIVE: CASE EVENT DATE: 20250101
